FAERS Safety Report 12895633 (Version 2)
Quarter: 2016Q4

REPORT INFORMATION
  Report Type: Report from Study
  Country: CN (occurrence: CN)
  Receive Date: 20161031
  Receipt Date: 20161109
  Transmission Date: 20170207
  Serious: No
  Sender: FDA-Public Use
  Company Number: CN-ASTRAZENECA-2016SF12111

PATIENT
  Age: 32 Year
  Sex: Female

DRUGS (1)
  1. BYETTA [Suspect]
     Active Substance: EXENATIDE
     Indication: DIABETES MELLITUS
     Dosage: 10 MCG TWO TIME A DAY
     Route: 058
     Dates: start: 20160922, end: 20161017

REACTIONS (2)
  - Cough [Unknown]
  - Measles [Recovered/Resolved]

NARRATIVE: CASE EVENT DATE: 20161014
